FAERS Safety Report 21848851 (Version 1)
Quarter: 2023Q1

REPORT INFORMATION
  Report Type: Spontaneous
  Country: US (occurrence: None)
  Receive Date: 20230110
  Receipt Date: 20230110
  Transmission Date: 20230418
  Serious: Yes (Hospitalization)
  Sender: FDA-Public Use
  Company Number: None

PATIENT
  Age: 54 Year
  Sex: Male

DRUGS (7)
  1. AMBRISENTAN [Suspect]
     Active Substance: AMBRISENTAN
     Indication: Pulmonary arterial hypertension
     Dosage: FREQUENCY : DAILY;?
     Route: 048
     Dates: start: 20200930
  2. SILDENAFIL [Suspect]
     Active Substance: SILDENAFIL
  3. SELEXIPAG [Suspect]
     Active Substance: SELEXIPAG
  4. GABAPENTIN [Concomitant]
     Active Substance: GABAPENTIN
  5. ATORVASTATIN [Concomitant]
     Active Substance: ATORVASTATIN
  6. DIGOXIN [Concomitant]
     Active Substance: DIGOXIN
  7. SPIRONOLACTONE [Concomitant]

REACTIONS (2)
  - Abdominal pain [None]
  - Diverticulitis intestinal perforated [None]

NARRATIVE: CASE EVENT DATE: 20221226
